FAERS Safety Report 8258820-1 (Version None)
Quarter: 2012Q1

REPORT INFORMATION
  Report Type: 
  Country: None (occurrence: None)
  Receive Date: 20120322
  Receipt Date: 20120206
  Transmission Date: 20120608
  Serious: Yes (Death)
  Sender: FDA-Public Use
  Company Number: UTC-015299

PATIENT
  Age: 77 Year
  Sex: Female
  Weight: 81.8 kg

DRUGS (1)
  1. TYVASO [Suspect]
     Indication: PULMONARY ARTERIAL HYPERTENSION
     Dosage: 18-54 MICROGRAMS,INHALATION
     Route: 055
     Dates: start: 20100721

REACTIONS (1)
  - DISEASE PROGRESSION [None]
